FAERS Safety Report 7919260-5 (Version None)
Quarter: 2011Q4

REPORT INFORMATION
  Report Type: 
  Country: None (occurrence: None)
  Receive Date: 20111114
  Receipt Date: 20111103
  Transmission Date: 20120403
  Serious: Yes (Hospitalization, Other)
  Sender: FDA-Public Use
  Company Number: CIP11001738

PATIENT
  Sex: Female
  Weight: 111.4 kg

DRUGS (42)
  1. ZITHROMAX [Concomitant]
  2. FORTEO [Suspect]
     Dosage: INJECTION NOS
     Dates: start: 20080410
  3. HYDROXYCHLOROQUINE SULFATE [Concomitant]
  4. HYDROCODONE W/APAP (HYDROCODONE, PARACETAMOL) [Concomitant]
  5. TRIAMTERENE AND HYDROCHLOROTHIAZIDE [Concomitant]
  6. ACTONEL [Suspect]
     Dosage: 35 MG, ORAL
     Route: 048
     Dates: start: 20040831, end: 20060921
  7. CYCLOBENZAPRINE [Concomitant]
  8. AZATHIOPRINE [Concomitant]
  9. RELPAX [Concomitant]
  10. FLUCONAZOLE [Concomitant]
  11. PREVACID [Concomitant]
  12. BONIVA [Suspect]
  13. NEXIUM [Concomitant]
  14. PROMETRIUM [Concomitant]
  15. ALPRAZOLAM [Concomitant]
  16. LEVAQUIN [Concomitant]
  17. PRAVACHOL [Concomitant]
  18. PROMETHAZINE [Concomitant]
  19. PROCHLORPERAZINE MALEATE [Concomitant]
  20. MEDROXYPROGEST (MEDROXYPROGESTERONE ACETATE) [Concomitant]
  21. ADVAIR HFA [Concomitant]
  22. RECLAST [Suspect]
     Indication: OSTEOPOROSIS
     Dosage: ONCE ONLY, IV NOS
     Route: 042
     Dates: start: 20100201, end: 20100201
  23. AMBIEN [Concomitant]
  24. TRIAMCINOLONE (TRIMCINOLONE) [Concomitant]
  25. BUPROPION HCL [Concomitant]
  26. TIZANIDINE HCL [Concomitant]
  27. CIPROFLOXACIN [Concomitant]
  28. TRIMETHOBENZAMIDE (TRIMETHOBENZAMIDE) [Concomitant]
  29. MECLIZINE [Concomitant]
  30. METOCLOPRAMIDE HCL [Concomitant]
  31. FORTICAL (CALCIUM CARBONATE) [Concomitant]
  32. TOPAMAX [Concomitant]
  33. MOBIC [Concomitant]
  34. GABAPENTIN [Concomitant]
  35. FOLIC ACID [Concomitant]
  36. PREDNISONE TAB [Concomitant]
  37. TOPROL-XL [Concomitant]
  38. MAXALT [Concomitant]
  39. LEXAPRO [Concomitant]
  40. AMOXICILLIN AND CLAVULANATE POTASSIUM (AMOXICILLIN TRIHYDRATE, CLAVULA [Concomitant]
  41. METHOTREXATE [Concomitant]
  42. DROCON-CS (BROMPHENIRAMINE MALEATE, HYDROCODONE BITARTRATE, PSEUDOEPHE [Concomitant]

REACTIONS (12)
  - PAIN IN EXTREMITY [None]
  - SYSTEMIC LUPUS ERYTHEMATOSUS [None]
  - CONDITION AGGRAVATED [None]
  - FEMUR FRACTURE [None]
  - STRESS FRACTURE [None]
  - COMMINUTED FRACTURE [None]
  - GASTROOESOPHAGEAL REFLUX DISEASE [None]
  - IATROGENIC INJURY [None]
  - BONE LOSS [None]
  - WALKING AID USER [None]
  - ARTHRALGIA [None]
  - GASTROINTESTINAL TRACT IRRITATION [None]
